FAERS Safety Report 7634392-7 (Version None)
Quarter: 2011Q3

REPORT INFORMATION
  Report Type: 
  Country: None (occurrence: None)
  Receive Date: 20110725
  Receipt Date: 20110714
  Transmission Date: 20111222
  Serious: Yes (Other)
  Sender: FDA-Public Use
  Company Number: PHFR2011IE04251

PATIENT
  Sex: Female

DRUGS (1)
  1. CLOZAPINE [Suspect]
     Indication: SCHIZOPHRENIA
     Route: 065
     Dates: start: 20110609

REACTIONS (6)
  - BACTERIAL INFECTION [None]
  - DIARRHOEA [None]
  - GASTRIC DISORDER [None]
  - HEART RATE INCREASED [None]
  - VOMITING [None]
  - EOSINOPHIL COUNT INCREASED [None]
